FAERS Safety Report 4677566-X (Version None)
Quarter: 2005Q2

REPORT INFORMATION
  Report Type: 
  Country: None (occurrence: None)
  Receive Date: 20050526
  Receipt Date: 20050526
  Transmission Date: 20051028
  Serious: Yes (Life-Threatening)
  Sender: FDA-Public Use
  Company Number: None

PATIENT
  Age: 53 Year
  Sex: Male
  Weight: 74.3899 kg

DRUGS (6)
  1. SALSALATE;;;ANTIRHEUMATICS;TABLETS;; [Suspect]
     Indication: PAIN
     Dosage: 75 MG BID
  2. DOCUSATE CA [Concomitant]
  3. FEROUS SULFATE [Concomitant]
  4. MAGNESIUM OXIDE [Concomitant]
  5. OMEPRAZOLE [Concomitant]
  6. PROPRANOLOL [Concomitant]

REACTIONS (12)
  - ABDOMINAL PAIN [None]
  - ANOREXIA [None]
  - DUODENAL ULCER [None]
  - EROSIVE DUODENITIS [None]
  - FALL [None]
  - FATIGUE [None]
  - GASTRIC ULCER [None]
  - GASTRITIS EROSIVE [None]
  - HYPOTENSION [None]
  - LABORATORY TEST ABNORMAL [None]
  - MENTAL STATUS CHANGES [None]
  - SYNCOPE [None]
